FAERS Safety Report 10312308 (Version 2)
Quarter: 2015Q4

REPORT INFORMATION
  Report Type: Report from Study
  Country: US (occurrence: US)
  Receive Date: 20140718
  Receipt Date: 20151013
  Transmission Date: 20160304
  Serious: Yes (Other)
  Sender: FDA-Public Use
  Company Number: US-ROCHE-1381569

PATIENT
  Sex: Female
  Weight: 49.5 kg

DRUGS (23)
  1. STRATTERA [Concomitant]
     Active Substance: ATOMOXETINE HYDROCHLORIDE
     Route: 048
  2. VENTOLIN HFA [Concomitant]
     Active Substance: ALBUTEROL SULFATE
     Dosage: 2 PUFFS TO LEFT AND RIGHT NOSTRIL
     Route: 045
  3. RITALIN [Concomitant]
     Active Substance: METHYLPHENIDATE HYDROCHLORIDE
     Dosage: 20 MG TAB-2TAB AT7.30,1 TAB AT10.30,1 TAB AT1.30
     Route: 048
  4. PREDNISONE. [Concomitant]
     Active Substance: PREDNISONE
     Route: 048
  5. ADVAIR DISKUS [Concomitant]
     Active Substance: FLUTICASONE PROPIONATE\SALMETEROL XINAFOATE
     Dosage: 2 PUFFS PRN, 250/50 MCG
     Route: 045
  6. BUSPIRONE HCL [Concomitant]
     Active Substance: BUSPIRONE HYDROCHLORIDE
  7. ACULAR [Concomitant]
     Active Substance: KETOROLAC TROMETHAMINE
     Dosage: 2 DROPS IN BOTH EYE
     Route: 047
  8. FEXOFENADINE HCL [Concomitant]
     Active Substance: FEXOFENADINE HYDROCHLORIDE
     Route: 048
  9. PROZAC [Concomitant]
     Active Substance: FLUOXETINE HYDROCHLORIDE
     Route: 048
  10. NASONEX [Concomitant]
     Active Substance: MOMETASONE FUROATE
     Route: 045
  11. NASOCORT [Concomitant]
     Active Substance: BUDESONIDE
     Dosage: 2 PUFFS TO LEFT AND RIGHT NOSTRIL
     Route: 045
  12. XOLAIR [Suspect]
     Active Substance: OMALIZUMAB
     Indication: ASTHMA
     Route: 058
  13. XOLAIR [Suspect]
     Active Substance: OMALIZUMAB
     Route: 058
  14. ALBUTEROL SULFATE. [Concomitant]
     Active Substance: ALBUTEROL SULFATE
     Route: 048
  15. PATANOL [Concomitant]
     Active Substance: OLOPATADINE HYDROCHLORIDE
     Route: 045
  16. AUGMENTIN [Concomitant]
     Active Substance: AMOXICILLIN\CLAVULANATE POTASSIUM
  17. RITALIN [Concomitant]
     Active Substance: METHYLPHENIDATE HYDROCHLORIDE
     Route: 048
  18. ALLEGRA [Concomitant]
     Active Substance: FEXOFENADINE HYDROCHLORIDE
     Route: 065
  19. SINGULAIR [Concomitant]
     Active Substance: MONTELUKAST SODIUM
     Route: 048
  20. VITAMIN D3 [Concomitant]
     Active Substance: CHOLECALCIFEROL
     Route: 048
  21. EPIPEN [Concomitant]
     Active Substance: EPINEPHRINE
     Route: 045
  22. LOESTRIN NOS [Concomitant]
     Active Substance: ETHINYL ESTRADIOL\NORETHINDRONE ACETATE
     Dosage: 1/20MCG
     Route: 045
  23. PULMICORT TURBUHALER [Concomitant]
     Active Substance: BUDESONIDE
     Route: 045

REACTIONS (34)
  - Change of bowel habit [Unknown]
  - Anxiety [Unknown]
  - Eye discharge [Unknown]
  - Upper respiratory tract infection [Unknown]
  - Scoliosis [Unknown]
  - Nasopharyngitis [Unknown]
  - Speech disorder [Unknown]
  - Nausea [Unknown]
  - Vomiting [Unknown]
  - Abdominal distension [Unknown]
  - Headache [Unknown]
  - Conjunctival hyperaemia [Unknown]
  - Short-bowel syndrome [Unknown]
  - Sinus headache [Unknown]
  - Sinus congestion [Unknown]
  - Anaphylactic reaction [Unknown]
  - Paraesthesia [Unknown]
  - Rhinitis [Unknown]
  - Joint stiffness [Unknown]
  - Abdominal pain [Unknown]
  - Flatulence [Unknown]
  - Eye irritation [Unknown]
  - Nasal congestion [Unknown]
  - Asthma [Unknown]
  - Immune system disorder [Unknown]
  - Hypertrophic scar [Unknown]
  - Muscle spasticity [Unknown]
  - Diarrhoea [Unknown]
  - Dysphonia [Unknown]
  - Arthralgia [Unknown]
  - Asthenia [Unknown]
  - Dry skin [Unknown]
  - Pruritus [Unknown]
  - Sinusitis [Recovered/Resolved]
